FAERS Safety Report 23260429 (Version 1)
Quarter: 2023Q4

REPORT INFORMATION
  Report Type: Spontaneous
  Country: US (occurrence: US)
  Receive Date: 20231205
  Receipt Date: 20231205
  Transmission Date: 20240109
  Serious: Yes (Other)
  Sender: FDA-Public Use
  Company Number: US-drreddys-LIT/USA/23/0187594

PATIENT
  Age: 37 Year
  Sex: Male

DRUGS (1)
  1. SEVELAMER [Suspect]
     Active Substance: SEVELAMER
     Indication: Chronic kidney disease

REACTIONS (2)
  - Haematochezia [Recovered/Resolved]
  - Mucosal ulceration [Recovered/Resolved]
